FAERS Safety Report 23746811 (Version 3)
Quarter: 2024Q2

REPORT INFORMATION
  Report Type: Other
  Country: AR (occurrence: None)
  Receive Date: 20240416
  Receipt Date: 20240426
  Transmission Date: 20240717
  Serious: Yes (Death, Hospitalization)
  Sender: FDA-Public Use
  Company Number: AR-ROCHE-3545783

PATIENT
  Age: 64 Year
  Sex: Male
  Weight: 81 kg

DRUGS (7)
  1. ATEZOLIZUMAB [Suspect]
     Active Substance: ATEZOLIZUMAB
     Indication: Lung cancer metastatic
     Dosage: ON 10/AUG/2020 HE RECEIVED MOST RECENT DOSE OF ATEZOLIZUMAB PRIOR TO AE/SAE.
     Route: 042
     Dates: start: 20200629
  2. ACETAMINOPHEN [Concomitant]
     Active Substance: ACETAMINOPHEN
     Dates: start: 20200810, end: 20200810
  3. BUDESONIDE [Concomitant]
     Active Substance: BUDESONIDE
  4. PREGABALIN [Concomitant]
     Active Substance: PREGABALIN
  5. CARBOPLATIN [Concomitant]
     Active Substance: CARBOPLATIN
  6. PEMETREXED [Concomitant]
     Active Substance: PEMETREXED
  7. PACLITAXEL [Concomitant]
     Active Substance: PACLITAXEL

REACTIONS (1)
  - Pneumonitis [Fatal]

NARRATIVE: CASE EVENT DATE: 20200828
